FAERS Safety Report 15014473 (Version 9)
Quarter: 2024Q3

REPORT INFORMATION
  Report Type: Report from Study
  Country: CA (occurrence: CA)
  Receive Date: 20180615
  Receipt Date: 20240901
  Transmission Date: 20241016
  Serious: Yes (Hospitalization, Other)
  Sender: TAKEDA
  Company Number: CA-TAKEDA-2016TUS021409

PATIENT
  Age: 22 Year
  Sex: Male

DRUGS (17)
  1. VEDOLIZUMAB [Suspect]
     Active Substance: VEDOLIZUMAB
     Indication: Crohn^s disease
     Dosage: 300 MILLIGRAM
     Route: 042
     Dates: start: 20161104
  2. VEDOLIZUMAB [Suspect]
     Active Substance: VEDOLIZUMAB
     Dosage: 300 MILLIGRAM, Q4WEEKS
     Route: 042
     Dates: start: 20170120
  3. VEDOLIZUMAB [Suspect]
     Active Substance: VEDOLIZUMAB
     Dosage: 300 MILLIGRAM, Q4WEEKS
     Route: 042
     Dates: end: 20180620
  4. VEDOLIZUMAB [Suspect]
     Active Substance: VEDOLIZUMAB
     Dosage: 300 MILLIGRAM
     Route: 042
     Dates: start: 20230125
  5. VEDOLIZUMAB [Suspect]
     Active Substance: VEDOLIZUMAB
     Dosage: 300 MILLIGRAM
     Route: 042
  6. VEDOLIZUMAB [Suspect]
     Active Substance: VEDOLIZUMAB
     Dosage: 300 MILLIGRAM
     Route: 042
  7. STELARA [Suspect]
     Active Substance: USTEKINUMAB
     Indication: Ankylosing spondylitis
     Dosage: UNK
     Route: 065
     Dates: start: 202301
  8. STELARA [Suspect]
     Active Substance: USTEKINUMAB
     Indication: Sacroiliitis
  9. METHOTREXATE [Concomitant]
     Active Substance: METHOTREXATE
     Dosage: UNK UNK, 1/WEEK
  10. VITAMIN D [Concomitant]
     Active Substance: VITAMIN D NOS
     Dosage: UNK
     Dates: start: 202011
  11. IRON [Concomitant]
     Active Substance: IRON
     Indication: Supplementation therapy
     Dosage: UNK
  12. FOLIC ACID [Concomitant]
     Active Substance: FOLIC ACID
     Dosage: UNK
  13. XELJANZ [Concomitant]
     Active Substance: TOFACITINIB CITRATE
     Indication: Colitis
     Dosage: 10 MILLIGRAM, BID
     Route: 048
     Dates: start: 2019
  14. CALCIUM [Concomitant]
     Active Substance: CALCIUM
     Dosage: 500 MILLIGRAM, QD
     Route: 048
  15. CIPRO [Concomitant]
     Active Substance: CIPROFLOXACIN HYDROCHLORIDE
     Dosage: UNK
     Dates: start: 20221213
  16. FLAGYL [Concomitant]
     Active Substance: METRONIDAZOLE\METRONIDAZOLE HYDROCHLORIDE
     Dosage: UNK
     Dates: start: 20221213
  17. PREDNISONE [Concomitant]
     Active Substance: PREDNISONE
     Dosage: 7.5 MILLIGRAM
     Route: 048

REACTIONS (12)
  - Uveitis [Unknown]
  - Crohn^s disease [Recovered/Resolved]
  - Adrenal insufficiency [Unknown]
  - Appendicitis [Unknown]
  - Gastrointestinal inflammation [Not Recovered/Not Resolved]
  - Bone density decreased [Unknown]
  - Swelling face [Unknown]
  - Proctitis [Unknown]
  - Anal fistula [Unknown]
  - Treatment failure [Unknown]
  - Off label use [Unknown]
  - Product dose omission issue [Unknown]

NARRATIVE: CASE EVENT DATE: 20161128
